FAERS Safety Report 11900525 (Version 2)
Quarter: 2016Q1

REPORT INFORMATION
  Report Type: Spontaneous
  Country: US (occurrence: US)
  Receive Date: 20160108
  Receipt Date: 20160323
  Transmission Date: 20160526
  Serious: Yes (Hospitalization, Other)
  Sender: FDA-Public Use
  Company Number: US-BAYER-2016-000860

PATIENT
  Age: 25 Year
  Sex: Female
  Weight: 98.46 kg

DRUGS (8)
  1. PROTONIX [Concomitant]
     Active Substance: PANTOPRAZOLE SODIUM
  2. VERSED [Concomitant]
     Active Substance: MIDAZOLAM HYDROCHLORIDE
  3. PLAVIX [Concomitant]
     Active Substance: CLOPIDOGREL BISULFATE
  4. MORPHINE [Concomitant]
     Active Substance: MORPHINE
  5. CETACAINE ANESTHETIC [Concomitant]
     Active Substance: BENZOCAINE\BUTAMBEN\TETRACAINE HYDROCHLORIDE
  6. YAZ [Suspect]
     Active Substance: DROSPIRENONE\ETHINYL ESTRADIOL
     Dosage: UNK
     Dates: start: 2006, end: 20090828
  7. YASMIN [Suspect]
     Active Substance: DROSPIRENONE\ETHINYL ESTRADIOL
     Dosage: UNK
     Dates: start: 2006, end: 20090828
  8. STATIN [Concomitant]
     Active Substance: UNSPECIFIED INGREDIENT

REACTIONS (14)
  - Transient ischaemic attack [None]
  - Dysmenorrhoea [None]
  - Emotional disorder [None]
  - Drug ineffective [None]
  - Embolism arterial [None]
  - Muscular weakness [None]
  - Speech disorder [None]
  - Menorrhagia [None]
  - Headache [None]
  - Hemiparesis [None]
  - Pregnancy on oral contraceptive [None]
  - Cerebral infarction [None]
  - Hemianaesthesia [None]
  - Stress [None]

NARRATIVE: CASE EVENT DATE: 20090814
